FAERS Safety Report 12673379 (Version 1)
Quarter: 2016Q3

REPORT INFORMATION
  Report Type: Spontaneous
  Country: US (occurrence: US)
  Receive Date: 20160822
  Receipt Date: 20160822
  Transmission Date: 20161109
  Serious: Yes (Other)
  Sender: FDA-Public Use
  Company Number: US-BAYER-2016-160342

PATIENT
  Age: 33 Year
  Sex: Female

DRUGS (1)
  1. MIRENA [Suspect]
     Active Substance: LEVONORGESTREL
     Indication: CONTRACEPTION
     Dosage: 20 MG/24HR, CONT
     Route: 015
     Dates: start: 20140630, end: 20140912

REACTIONS (7)
  - Panic attack [None]
  - Genital injury [None]
  - Device difficult to use [None]
  - Anxiety [None]
  - Uterine perforation [None]
  - Uterine injury [None]
  - Depression [None]

NARRATIVE: CASE EVENT DATE: 201407
